FAERS Safety Report 5949764-6 (Version None)
Quarter: 2008Q4

REPORT INFORMATION
  Report Type: 
  Country: None (occurrence: None)
  Receive Date: 20081022
  Receipt Date: 20080213
  Transmission Date: 20090506
  Serious: Yes (Other)
  Sender: FDA-Public Use
  Company Number: SPV1-2008-00306

PATIENT
  Age: 10 Year
  Sex: Male

DRUGS (4)
  1. VYVANSE [Suspect]
     Indication: ATTENTION DEFICIT/HYPERACTIVITY DISORDER
     Dosage: 30 MG, 1X/DAY:QD, ORAL
     Route: 048
     Dates: start: 20071201
  2. ALLEGRA [Suspect]
     Indication: HYPERSENSITIVITY
     Dosage: 1X/DAY:QD, ORAL
     Route: 047
     Dates: start: 20080101, end: 20080210
  3. SINGULAIR /01362601/ (MONTELUKAST) [Concomitant]
  4. BENADRYL [Concomitant]

REACTIONS (4)
  - ANGER [None]
  - DRUG INTERACTION [None]
  - NEGATIVISM [None]
  - SUICIDAL IDEATION [None]
